FAERS Safety Report 6589183-5 (Version None)
Quarter: 2010Q1

REPORT INFORMATION
  Report Type: 
  Country: None (occurrence: None)
  Receive Date: 20100212
  Receipt Date: 20100128
  Transmission Date: 20100710
  Serious: Yes (Other)
  Sender: FDA-Public Use
  Company Number: 230125J10BRA

PATIENT
  Sex: Female

DRUGS (2)
  1. REBIF [Suspect]
     Indication: OFF LABEL USE
     Dosage: 44 MCG, 3 IN 1 WEEKS
     Dates: start: 20080627, end: 20091126
  2. REBIF [Suspect]
     Indication: OFF LABEL USE
     Dosage: 44 MCG, 3 IN 1 WEEKS
     Dates: start: 20091126

REACTIONS (2)
  - BREAST MASS [None]
  - OFF LABEL USE [None]
